FAERS Safety Report 14248204 (Version 1)
Quarter: 2017Q4

REPORT INFORMATION
  Report Type: Spontaneous
  Country: US (occurrence: US)
  Receive Date: 20171204
  Receipt Date: 20171204
  Transmission Date: 20180321
  Serious: No
  Sender: FDA-Public Use
  Company Number: US-PFIZER INC-2017506974

PATIENT
  Age: 74 Year
  Sex: Female
  Weight: 53 kg

DRUGS (1)
  1. ATROPINE SULFATE/DIPHENOXYLATE HYDROCHLORIDE [Suspect]
     Active Substance: ATROPINE SULFATE\DIPHENOXYLATE HYDROCHLORIDE
     Indication: DIARRHOEA
     Dosage: UNK, (1 TABLET BY MOUTH FOR EACH LOOSE STOOL, NOT MORE THAN 7 TABLETS PER DAY)
     Route: 048
     Dates: start: 201705, end: 201705

REACTIONS (5)
  - Feeling drunk [Recovering/Resolving]
  - Dysphemia [Recovering/Resolving]
  - Disorganised speech [Recovering/Resolving]
  - Product use issue [Unknown]
  - Feeling abnormal [Recovering/Resolving]

NARRATIVE: CASE EVENT DATE: 201705
